FAERS Safety Report 5815054-5 (Version None)
Quarter: 2008Q3

REPORT INFORMATION
  Report Type: 
  Country: None (occurrence: None)
  Receive Date: 20080718
  Receipt Date: 20080711
  Transmission Date: 20090109
  Serious: Yes (Other)
  Sender: FDA-Public Use
  Company Number: B0529714A

PATIENT
  Age: 25 Year
  Sex: Female

DRUGS (1)
  1. ZENTEL [Suspect]
     Indication: INFECTION PARASITIC
     Dosage: 2TAB PER DAY
     Route: 048
     Dates: start: 20080705, end: 20080705

REACTIONS (3)
  - DRUG ERUPTION [None]
  - RASH ERYTHEMATOUS [None]
  - URTICARIA [None]
